FAERS Safety Report 9089254 (Version 1)
Quarter: 2013Q1

REPORT INFORMATION
  Report Type: Spontaneous
  Country: US (occurrence: US)
  Receive Date: 20130201
  Receipt Date: 20130201
  Transmission Date: 20140127
  Serious: No
  Sender: FDA-Public Use
  Company Number: US-GALDERMA-US-GDP-12415128

PATIENT
  Sex: Female

DRUGS (3)
  1. EPIDUO [Suspect]
     Route: 061
     Dates: start: 20120706, end: 20120820
  2. CETAPHIL [Suspect]
     Route: 061
  3. CETAPHIL GENTLE CLEANSING ANTIBACTERIAL BAR [Suspect]
     Route: 061
     Dates: start: 20120706, end: 20120820

REACTIONS (2)
  - Rash papular [Recovered/Resolved]
  - Condition aggravated [Recovered/Resolved]
